FAERS Safety Report 12655067 (Version 1)
Quarter: 2016Q3

REPORT INFORMATION
  Report Type: Spontaneous
  Country: CN (occurrence: CN)
  Receive Date: 20160816
  Receipt Date: 20160816
  Transmission Date: 20161109
  Serious: Yes (Death, Other)
  Sender: FDA-Public Use
  Company Number: CN-PFIZER INC-2016383713

PATIENT
  Age: 73 Year
  Sex: Male
  Weight: 60 kg

DRUGS (4)
  1. DOXYCYCLINE HCL [Suspect]
     Active Substance: DOXYCYCLINE HYDROCHLORIDE
     Indication: ANTIBIOTIC THERAPY
     Dosage: 0.1 G, 2X/DAY
     Route: 048
     Dates: start: 20160228, end: 20160229
  2. DIFLUCAN [Suspect]
     Active Substance: FLUCONAZOLE
     Indication: ANTIBIOTIC THERAPY
     Dosage: 200 MG, 1X/DAY
     Route: 041
     Dates: start: 20160216, end: 20160228
  3. SULPERAZON [Suspect]
     Active Substance: CEFOPERAZONE SODIUM\SULBACTAM SODIUM
     Indication: INFECTION
     Dosage: 3 G, 3X/DAY
     Route: 041
     Dates: start: 20160212, end: 20160228
  4. LIPITOR [Suspect]
     Active Substance: ATORVASTATIN CALCIUM
     Indication: DRUG THERAPY
     Dosage: 40 MG, 1X/DAY
     Route: 041
     Dates: start: 20160222, end: 20160301

REACTIONS (3)
  - Cardiogenic shock [Fatal]
  - Hepatocellular injury [Not Recovered/Not Resolved]
  - Acinetobacter infection [Unknown]

NARRATIVE: CASE EVENT DATE: 20160226
